FAERS Safety Report 9669709 (Version 6)
Quarter: 2014Q1

REPORT INFORMATION
  Report Type: Spontaneous
  Country: JP (occurrence: JP)
  Receive Date: 20131105
  Receipt Date: 20140211
  Transmission Date: 20141002
  Serious: Yes (Death, Life-Threatening, Other)
  Sender: FDA-Public Use
  Company Number: JP-PFIZER INC-2013314073

PATIENT
  Age: 86 Year
  Sex: Male
  Weight: 44.7 kg

DRUGS (11)
  1. CELECOX [Suspect]
     Indication: RHEUMATIC DISORDER
     Dosage: 100 MG, 2X/DAY (STRENGTH100MG)
     Route: 048
     Dates: start: 20130410, end: 20130823
  2. CELECOX [Suspect]
     Indication: ARTHRALGIA
     Dosage: 100 MG, 2X/DAY
     Route: 048
     Dates: start: 20131019, end: 20131027
  3. CELECOX [Suspect]
     Indication: RHEUMATOID ARTHRITIS
  4. RHEUMATREX [Suspect]
     Indication: RHEUMATOID FACTOR POSITIVE
     Dosage: 4 MG, WEEKLY
     Route: 048
     Dates: start: 20130417, end: 20130531
  5. RHEUMATREX [Suspect]
     Dosage: 6 MG, WEEKLY
     Route: 048
     Dates: start: 20130601, end: 20130822
  6. RHEUMATREX [Suspect]
     Dosage: 4 MG, WEEKLY
     Route: 048
     Dates: start: 20130823, end: 20130920
  7. MUCOSTA [Concomitant]
     Indication: GASTRITIS PROPHYLAXIS
     Dosage: UNK
     Dates: start: 20130410, end: 20130822
  8. PREDNISOLONE [Concomitant]
     Dosage: UNK
     Dates: start: 20131114, end: 20131222
  9. PARIET [Concomitant]
     Dosage: UNK
     Dates: start: 20131104, end: 20131222
  10. PURSENNID [Concomitant]
     Dosage: UNK
     Dates: start: 20131108, end: 20131222
  11. CRAVIT [Concomitant]
     Dosage: UNK
     Dates: start: 20131004, end: 20131012

REACTIONS (7)
  - Rheumatoid vasculitis [Fatal]
  - Pneumonia [Fatal]
  - Interstitial lung disease [Not Recovered/Not Resolved]
  - Pneumothorax [Recovered/Resolved]
  - Pneumonia [Recovered/Resolved]
  - Constipation [Recovered/Resolved]
  - Dysphagia [Unknown]
